FAERS Safety Report 6446496-5 (Version None)
Quarter: 2009Q4

REPORT INFORMATION
  Report Type: 
  Country: None (occurrence: None)
  Receive Date: 20091116
  Receipt Date: 20091103
  Transmission Date: 20100525
  Serious: Yes (Hospitalization)
  Sender: FDA-Public Use
  Company Number: 20090503

PATIENT
  Age: 18 Day
  Sex: Female

DRUGS (9)
  1. DEXAMETHASONE SODIUM PHOSPHATE [Suspect]
     Indication: MECHANICAL VENTILATION
     Dosage: 0.25 MG/KG 2 X DAY INTRAVENOUS
     Route: 042
  2. ALBUTEROL [Concomitant]
  3. IPRATROPIUM BROMIDE [Concomitant]
  4. POTASSIUM CHLORIDE [Concomitant]
  5. THEOPHYLLINE [Concomitant]
  6. AMINOPHYLLINE [Concomitant]
  7. SODIUM CHLORIDE [Concomitant]
  8. FUROSEMIDE [Concomitant]
  9. ANTIBACTERIALS [Concomitant]

REACTIONS (5)
  - BRADYCARDIA NEONATAL [None]
  - HYPERTENSION NEONATAL [None]
  - NEONATAL HYPONATRAEMIA [None]
  - NEONATAL TACHYCARDIA [None]
  - RESPIRATORY DISORDER NEONATAL [None]
